FAERS Safety Report 22098969 (Version 3)
Quarter: 2023Q1

REPORT INFORMATION
  Report Type: Report from Study
  Country: ES (occurrence: ES)
  Receive Date: 20230315
  Receipt Date: 20230325
  Transmission Date: 20230417
  Serious: Yes (Death, Hospitalization)
  Sender: FDA-Public Use
  Company Number: ES-ABBVIE-4341111

PATIENT
  Age: 79 Year
  Sex: Male

DRUGS (4)
  1. CARBIDOPA\LEVODOPA [Suspect]
     Active Substance: CARBIDOPA\LEVODOPA
     Indication: Parkinson^s disease
     Route: 050
     Dates: start: 20190926
  2. CARBIDOPA\LEVODOPA [Suspect]
     Active Substance: CARBIDOPA\LEVODOPA
  3. MORPHINE [Concomitant]
     Active Substance: MORPHINE
     Indication: Respiratory disorder
     Route: 058
     Dates: start: 202303
  4. MORPHINE [Concomitant]
     Active Substance: MORPHINE
     Indication: Respiratory disorder
     Dosage: ONGOING
     Route: 058
     Dates: start: 202303

REACTIONS (5)
  - Death [Fatal]
  - Anaemia [Recovering/Resolving]
  - Disease progression [Unknown]
  - Renal impairment [Not Recovered/Not Resolved]
  - Respiratory failure [Recovering/Resolving]

NARRATIVE: CASE EVENT DATE: 20230301
